FAERS Safety Report 6779750 (Version 16)
Quarter: 2014Q1

REPORT INFORMATION
  Report Type: Spontaneous
  Country: US (occurrence: US)
  Receive Date: 20081006
  Receipt Date: 20140206
  Transmission Date: 20141002
  Serious: Yes (Death, Hospitalization, Other)
  Sender: FDA-Public Use
  Company Number: PHEH2008US08700

PATIENT
  Age: 68 Year
  Sex: Female
  Weight: 60.77 kg

DRUGS (37)
  1. ZOMETA [Suspect]
     Dates: start: 200204, end: 200603
  2. AREDIA [Suspect]
     Dates: start: 200012, end: 200202
  3. CELESTONE [Concomitant]
     Dosage: 2 ML,
     Route: 065
     Dates: start: 20000912
  4. XYLOCAINE [Concomitant]
     Dosage: 1 %,
     Route: 065
     Dates: start: 20000912
  5. RELAFEN [Concomitant]
  6. PERCOCET [Concomitant]
     Route: 048
  7. FEMARA [Concomitant]
     Dates: start: 200312
  8. DRUG THERAPY NOS [Concomitant]
     Dates: start: 200312
  9. FASLODEX [Concomitant]
  10. TAMOXIFEN [Concomitant]
  11. ATENOLOL [Concomitant]
     Dosage: 100 MG, QD
     Route: 048
  12. LIPITOR                                 /NET/ [Concomitant]
     Dosage: 10 MG, QD
     Route: 048
  13. AMOXICILLIN [Concomitant]
     Dosage: 500 MG, QD
     Route: 048
  14. OXYCONTIN [Concomitant]
     Route: 048
  15. XELODA [Concomitant]
     Dates: start: 20070322
  16. AVASTIN [Concomitant]
     Dates: start: 20070322
  17. LACTULOSE [Concomitant]
  18. ENALAPRIL [Concomitant]
     Route: 048
  19. VASOTEC [Concomitant]
     Dosage: 5 MG, Q12H
  20. DURAGESIC [Concomitant]
     Route: 062
  21. FLAGYL [Concomitant]
  22. METRONIDAZOLE [Concomitant]
  23. PROTONIX ^PHARMACIA^ [Concomitant]
  24. NEUPOGEN [Concomitant]
  25. FOSAMAX [Concomitant]
  26. ATROPINE OPHTHALMIC [Concomitant]
  27. ZOCOR ^DIECKMANN^ [Concomitant]
  28. HYDROCHLOROTHIAZIDE [Concomitant]
  29. ASPIRIN ^BAYER^ [Concomitant]
  30. PLAVIX [Concomitant]
  31. HALDOL [Concomitant]
  32. SOLU-MEDROL [Concomitant]
  33. NOVOLOG [Concomitant]
  34. LASIX [Concomitant]
  35. DIPRIVAN [Concomitant]
  36. ROCEPHIN [Concomitant]
  37. LEVOPHED [Concomitant]

REACTIONS (100)
  - Intervertebral disc protrusion [Unknown]
  - Spinal column stenosis [Unknown]
  - Radiculopathy [Unknown]
  - Hypoaesthesia [Unknown]
  - Pain in extremity [Unknown]
  - Fall [Unknown]
  - Large intestine polyp [Unknown]
  - Osteonecrosis of jaw [Recovering/Resolving]
  - Osteomyelitis acute [Unknown]
  - Pain [Unknown]
  - Oral infection [Unknown]
  - Purulent discharge [Unknown]
  - Pain in jaw [Unknown]
  - Anxiety [Unknown]
  - Oral cavity fistula [Unknown]
  - Gingival erosion [Unknown]
  - Anhedonia [Unknown]
  - Colitis ischaemic [Unknown]
  - Diarrhoea [Unknown]
  - Rectal haemorrhage [Unknown]
  - Leukopenia [Unknown]
  - Irritable bowel syndrome [Unknown]
  - Haemorrhoids [Unknown]
  - Wound [Unknown]
  - Foot fracture [Unknown]
  - Cardiomegaly [Unknown]
  - Lung infiltration [Unknown]
  - Pleural effusion [Unknown]
  - Intervertebral disc compression [Unknown]
  - Periodontal disease [Unknown]
  - Meniscus injury [Unknown]
  - Joint effusion [Unknown]
  - Bone disorder [Recovered/Resolved]
  - Abscess [Unknown]
  - Fistula [Unknown]
  - Cellulitis [Unknown]
  - Actinomycosis [Unknown]
  - Constipation [Unknown]
  - Neuropathy peripheral [Unknown]
  - Infection [Unknown]
  - Salivary gland mass [Unknown]
  - Oedema [Recovered/Resolved]
  - Ecchymosis [Recovered/Resolved]
  - Oral disorder [Unknown]
  - Oral pain [Unknown]
  - Gingival bleeding [Unknown]
  - Oral mucosal blistering [Unknown]
  - Glossodynia [Unknown]
  - Gingival swelling [Unknown]
  - Rheumatoid arthritis [Unknown]
  - Epilepsy [Unknown]
  - Back disorder [Unknown]
  - Pneumonia [Not Recovered/Not Resolved]
  - Dyspnoea [Not Recovered/Not Resolved]
  - Hypertension [Not Recovered/Not Resolved]
  - Pulmonary hypertension [Not Recovered/Not Resolved]
  - Cardiac failure congestive [Not Recovered/Not Resolved]
  - Hyperlipidaemia [Unknown]
  - Retinal haemorrhage [Unknown]
  - Mitral valve disease [Unknown]
  - Arteriosclerosis [Unknown]
  - Gastrooesophageal reflux disease [Unknown]
  - Hypotension [Unknown]
  - Left ventricular hypertrophy [Unknown]
  - Pericardial effusion [Unknown]
  - Aortic arteriosclerosis [Unknown]
  - Mitral valve prolapse [Unknown]
  - Mitral valve incompetence [Unknown]
  - Tricuspid valve incompetence [Unknown]
  - Oliguria [Unknown]
  - Hypoalbuminaemia [Unknown]
  - Leukocytosis [Unknown]
  - Sepsis [Unknown]
  - Sciatica [Unknown]
  - Osteolysis [Unknown]
  - Spondylolisthesis [Unknown]
  - Aortic calcification [Unknown]
  - Hyperkalaemia [Unknown]
  - Intervertebral disc space narrowing [Unknown]
  - Parotitis [Unknown]
  - Paraesthesia [Unknown]
  - Arteriosclerosis coronary artery [Unknown]
  - Scoliosis [Unknown]
  - Bone pain [Unknown]
  - Acute respiratory failure [Fatal]
  - Acute respiratory distress syndrome [Fatal]
  - Respiratory distress [Fatal]
  - Malignant neoplasm progression [Fatal]
  - Metastases to bone [Fatal]
  - Metastases to spine [Fatal]
  - Metastases to lung [Fatal]
  - Back pain [Fatal]
  - Mobility decreased [Fatal]
  - Decreased appetite [Fatal]
  - Weight decreased [Fatal]
  - General physical health deterioration [Unknown]
  - Osteoarthritis [Unknown]
  - Spinal osteoarthritis [Unknown]
  - Arthralgia [Unknown]
  - Compression fracture [Unknown]
